FAERS Safety Report 5676390-9 (Version None)
Quarter: 2008Q1

REPORT INFORMATION
  Report Type: 
  Country: None (occurrence: None)
  Receive Date: 20080321
  Receipt Date: 20080311
  Transmission Date: 20080703
  Serious: Yes (Other)
  Sender: FDA-Public Use
  Company Number: US-PFIZER INC-2008023403

PATIENT
  Sex: Male
  Weight: 93 kg

DRUGS (2)
  1. CHANTIX [Suspect]
     Indication: EX-SMOKER
  2. ALL OTHER THERAPEUTIC PRODUCTS [Concomitant]

REACTIONS (1)
  - HAEMOPTYSIS [None]
